FAERS Safety Report 5407633-4 (Version None)
Quarter: 2007Q3

REPORT INFORMATION
  Report Type: 
  Country: None (occurrence: None)
  Receive Date: 20070713
  Receipt Date: 20070530
  Transmission Date: 20080115
  Serious: No
  Sender: FDA-Public Use
  Company Number: 2007SP002017

PATIENT
  Age: 66 Year
  Sex: Female
  Weight: 63.5036 kg

DRUGS (8)
  1. LUNESTA [Suspect]
     Indication: INSOMNIA
     Dosage: 3 MG; ORAL; 3 MG; ORAL
     Route: 048
     Dates: start: 20060101, end: 20060101
  2. LUNESTA [Suspect]
     Indication: INSOMNIA
     Dosage: 3 MG; ORAL; 3 MG; ORAL
     Route: 048
     Dates: start: 20060501
  3. EFFEXOR [Concomitant]
  4. REMERON [Concomitant]
  5. ABILIFY [Concomitant]
  6. CYTOMEL [Concomitant]
  7. SYNTHROID [Concomitant]
  8. KLONOPIN [Concomitant]

REACTIONS (1)
  - INSOMNIA [None]
